FAERS Safety Report 11859987 (Version 1)
Quarter: 2015Q4

REPORT INFORMATION
  Report Type: Spontaneous
  Country: ZA (occurrence: ZA)
  Receive Date: 20151222
  Receipt Date: 20151222
  Transmission Date: 20160305
  Serious: Yes (Life-Threatening, Other)
  Sender: FDA-Public Use
  Company Number: ZA-AUROBINDO-AUR-APL-2015-11571

PATIENT
  Age: 31 Year
  Sex: Female

DRUGS (3)
  1. NEVIRAPINE. [Suspect]
     Active Substance: NEVIRAPINE
     Indication: HIV INFECTION
     Dosage: 400 MG, DAILY
     Route: 065
  2. LAMIVUDINE. [Concomitant]
     Active Substance: LAMIVUDINE
     Indication: HIV INFECTION
     Dosage: 300 MG, DAILY
     Route: 065
  3. TENOFOVIR DISOPROXIL FUMARATE. [Concomitant]
     Active Substance: TENOFOVIR DISOPROXIL FUMARATE
     Indication: HIV INFECTION
     Dosage: 300 MG, DAILY
     Route: 065

REACTIONS (12)
  - Malaise [Recovering/Resolving]
  - Stevens-Johnson syndrome [Recovering/Resolving]
  - Rash [Recovering/Resolving]
  - Odynophagia [Recovering/Resolving]
  - Conjunctivitis [Recovering/Resolving]
  - Cheilitis [Recovering/Resolving]
  - Eosinophil count increased [Recovering/Resolving]
  - Epidermal necrosis [Recovering/Resolving]
  - Overdose [Recovering/Resolving]
  - Eye pain [Recovering/Resolving]
  - Skin hyperpigmentation [Not Recovered/Not Resolved]
  - Inappropriate schedule of drug administration [Recovering/Resolving]
